FAERS Safety Report 19229594 (Version 2)
Quarter: 2021Q4

REPORT INFORMATION
  Report Type: Spontaneous
  Country: US (occurrence: US)
  Receive Date: 20210507
  Receipt Date: 20211213
  Transmission Date: 20220303
  Serious: No
  Sender: FDA-Public Use
  Company Number: US-SA-SAC20210505000636

PATIENT
  Age: 59 Year
  Sex: Male

DRUGS (1)
  1. KEVZARA [Suspect]
     Active Substance: SARILUMAB
     Indication: Rheumatoid arthritis
     Dosage: 200 MG, QOW
     Route: 058
     Dates: start: 20200925

REACTIONS (4)
  - Joint swelling [Unknown]
  - Condition aggravated [Unknown]
  - Pain [Unknown]
  - Arthralgia [Unknown]

NARRATIVE: CASE EVENT DATE: 20210301
